FAERS Safety Report 5085632-2 (Version None)
Quarter: 2006Q4

REPORT INFORMATION
  Report Type: 
  Country: None (occurrence: None)
  Receive Date: 20060817
  Receipt Date: 20060803
  Transmission Date: 20070319
  Serious: Yes (Other)
  Sender: FDA-Public Use
  Company Number: 2006097483

PATIENT
  Sex: Female

DRUGS (7)
  1. CHANTIX [Suspect]
     Indication: SMOKING CESSATION THERAPY
     Dosage: 1 MG (1 MG,2 IN 1 D), ORAL
     Route: 048
     Dates: start: 20060714
  2. IBUPROFEN [Suspect]
     Indication: FIBROMYALGIA
     Dosage: 1600 MG (800 MG,2 IN 1 D)
     Dates: start: 20060101
  3. IBUPROFEN [Suspect]
     Indication: SWELLING
     Dosage: 1600 MG (800 MG,2 IN 1 D)
     Dates: start: 20060101
  4. PROVIGIL [Suspect]
     Indication: NARCOLEPSY
     Dates: start: 20060705
  5. NORCO [Suspect]
     Indication: NECK PAIN
  6. ALL OTHER THERAPEUTIC PRODUCTS [Concomitant]
  7. CORRECTOL  (INOSINE MONOPHOSPHATE DISODIUM) [Concomitant]

REACTIONS (2)
  - CONSTIPATION [None]
  - FLATULENCE [None]
